FAERS Safety Report 10073030 (Version 1)
Quarter: 2014Q2

REPORT INFORMATION
  Report Type: Spontaneous
  Country: CL (occurrence: CL)
  Receive Date: 20140411
  Receipt Date: 20140411
  Transmission Date: 20141212
  Serious: Yes (Other)
  Sender: FDA-Public Use
  Company Number: CL-PFIZER INC-2014097902

PATIENT
  Age: 67 Year
  Sex: Female

DRUGS (9)
  1. XALATAN [Suspect]
     Indication: GLAUCOMA
     Dosage: 1 DROP, 1X/DAY
     Route: 047
     Dates: start: 2007
  2. METFORMIN [Concomitant]
  3. LOSARTAN [Concomitant]
  4. ATENOLOL [Concomitant]
  5. ARTIFICIAL TEARS [Concomitant]
  6. ASPIRIN ^BAYER^ [Concomitant]
  7. CALCIUM [Concomitant]
  8. OMEPRAZOL [Concomitant]
  9. CHONDROITIN/GLUCOSAMINE [Concomitant]

REACTIONS (7)
  - Mitral valve stenosis [Not Recovered/Not Resolved]
  - Hypertension [Not Recovered/Not Resolved]
  - Glucose tolerance impaired [Not Recovered/Not Resolved]
  - Osteoarthritis [Not Recovered/Not Resolved]
  - Back pain [Not Recovered/Not Resolved]
  - Bronchitis [Not Recovered/Not Resolved]
  - Abdominal discomfort [Not Recovered/Not Resolved]
